FAERS Safety Report 22593506 (Version 2)
Quarter: 2023Q2

REPORT INFORMATION
  Report Type: Other
  Country: US (occurrence: None)
  Receive Date: 20230613
  Receipt Date: 20230616
  Transmission Date: 20230721
  Serious: Yes (Death)
  Sender: FDA-Public Use
  Company Number: US-ROCHE-3366838

PATIENT
  Age: 72 Year
  Sex: Female

DRUGS (5)
  1. RITUXAN [Suspect]
     Active Substance: RITUXIMAB
     Indication: Hypersensitivity pneumonitis
     Dosage: INFUSE 1000MG INTRAVENOUSLY ONCE ON DAY 1 AND DAY 15, THEN REPEAT CYCLE EVERY 16 WEEKS ONGOING?500 M
     Route: 042
  2. RITUXAN [Suspect]
     Active Substance: RITUXIMAB
     Indication: Interstitial lung disease
  3. MEDROL [Concomitant]
     Active Substance: METHYLPREDNISOLONE
  4. ENALAPRIL [Concomitant]
     Active Substance: ENALAPRIL
  5. ZOLOFT [Concomitant]
     Active Substance: SERTRALINE HYDROCHLORIDE

REACTIONS (2)
  - Death [Fatal]
  - Off label use [Fatal]
